FAERS Safety Report 25272736 (Version 1)
Quarter: 2025Q2

REPORT INFORMATION
  Report Type: Spontaneous
  Country: DE (occurrence: DE)
  Receive Date: 20250506
  Receipt Date: 20250506
  Transmission Date: 20250716
  Serious: Yes (Life-Threatening, Hospitalization, Other)
  Sender: BOEHRINGER INGELHEIM
  Company Number: None

PATIENT
  Age: 48 Year
  Sex: Male

DRUGS (6)
  1. JARDIANCE [Suspect]
     Active Substance: EMPAGLIFLOZIN
     Indication: Type 2 diabetes mellitus
     Dosage: 1-0-0
     Dates: end: 20250127
  2. BISOPROLOL FUMARATE [Concomitant]
     Active Substance: BISOPROLOL FUMARATE
     Indication: Product used for unknown indication
     Dosage: 1-0-1
  3. TRULICITY 1,5 mg Injektionsl?sung i.e.Fertigpen [Concomitant]
     Indication: Product used for unknown indication
     Dosage: 2-0-0 MONDAYS
  4. MARCUMAR [Concomitant]
     Active Substance: PHENPROCOUMON
     Indication: Anticoagulant therapy
  5. Entresto 24 mg/26 mg Filmtabletten [Concomitant]
     Indication: Product used for unknown indication
     Dosage: 1-0-1
  6. Huminsulin Normal KwikPen 100 IE/ml Injektionsl?sung [Concomitant]
     Indication: Product used for unknown indication

REACTIONS (4)
  - Impaired healing [Recovering/Resolving]
  - Fournier^s gangrene [Recovering/Resolving]
  - Penile abscess [Recovering/Resolving]
  - Abscess limb [Recovering/Resolving]

NARRATIVE: CASE EVENT DATE: 20250101
